FAERS Safety Report 7822023-2 (Version None)
Quarter: 2011Q4

REPORT INFORMATION
  Report Type: 
  Country: None (occurrence: None)
  Receive Date: 20111018
  Receipt Date: 20111010
  Transmission Date: 20120403
  Serious: Yes (Hospitalization)
  Sender: FDA-Public Use
  Company Number: PHHO2011TR17099

PATIENT
  Sex: Female
  Weight: 70.5 kg

DRUGS (2)
  1. FLURBIPROFEN [Concomitant]
     Indication: ANTIINFLAMMATORY THERAPY
     Dosage: UNK
     Dates: start: 20110121
  2. IMATINIB MESYLATE [Suspect]
     Indication: GASTROINTESTINAL STROMAL TUMOUR
     Dosage: 400 G, UNK
     Route: 048
     Dates: start: 20110121, end: 20111006

REACTIONS (1)
  - ABDOMINAL ABSCESS [None]
